FAERS Safety Report 5297833-9 (Version None)
Quarter: 2007Q2

REPORT INFORMATION
  Report Type: 
  Country: None (occurrence: None)
  Receive Date: 20070406
  Receipt Date: 20070322
  Transmission Date: 20071010
  Serious: Yes (Other)
  Sender: FDA-Public Use
  Company Number: 16139

PATIENT
  Age: 11 Year
  Sex: Male

DRUGS (5)
  1. VINCRISTINE [Suspect]
     Indication: ACUTE LYMPHOCYTIC LEUKAEMIA
     Dosage: 1.5 MG/M2 WEEKLY IV
     Route: 042
  2. ADRIAMYCIN /00330901/ [Concomitant]
  3. L-ASPARIGINASE [Concomitant]
  4. PREDNISOLONE [Concomitant]
  5. FLUCONAZOLE [Concomitant]

REACTIONS (1)
  - GRAND MAL CONVULSION [None]
